FAERS Safety Report 5897727-1 (Version None)
Quarter: 2008Q3

REPORT INFORMATION
  Report Type: 
  Country: None (occurrence: None)
  Receive Date: 20080925
  Receipt Date: 20080916
  Transmission Date: 20090109
  Serious: Yes (Other)
  Sender: FDA-Public Use
  Company Number: PHBS2008TW05742

PATIENT
  Age: 30 Year
  Sex: Female

DRUGS (4)
  1. CYCLOSPORINE [Suspect]
     Indication: RENAL TRANSPLANT
     Dosage: 100 MG, UNK
  2. CYCLOSPORINE [Suspect]
     Dosage: 200 MG, UNK
  3. SIROLIMUS [Concomitant]
     Indication: RENAL TRANSPLANT
     Dosage: 1 MG, UNK
  4. PREDNISOLONE [Concomitant]
     Indication: RENAL TRANSPLANT
     Dosage: 2.5 MG, UNK

REACTIONS (4)
  - CAESAREAN SECTION [None]
  - DRUG EXPOSURE DURING PREGNANCY [None]
  - MENSTRUATION IRREGULAR [None]
  - NORMAL NEWBORN [None]
